FAERS Safety Report 17380142 (Version 1)
Quarter: 2020Q1

REPORT INFORMATION
  Report Type: Spontaneous
  Country: US (occurrence: US)
  Receive Date: 20200206
  Receipt Date: 20200206
  Transmission Date: 20200409
  Serious: Yes (Life-Threatening, Disabling)
  Sender: FDA-Public Use
  Company Number: None

PATIENT
  Age: 20 Year
  Weight: 72 kg

DRUGS (3)
  1. TESTOSTERONE GEL 1% [Concomitant]
     Active Substance: TESTOSTERONE
  2. FLAGYL [Suspect]
     Active Substance: METRONIDAZOLE\METRONIDAZOLE HYDROCHLORIDE
     Indication: INFECTED CYST
     Dosage: ?          QUANTITY:1 TABLET(S);?
     Route: 048
     Dates: start: 20200129, end: 20200204
  3. METOPROLOL TARTRATE 100 MG [Concomitant]
     Active Substance: METOPROLOL TARTRATE

REACTIONS (28)
  - Dysgeusia [None]
  - Chromaturia [None]
  - Abdominal discomfort [None]
  - Dizziness [None]
  - Somnolence [None]
  - Disorientation [None]
  - Atrial fibrillation [None]
  - Sinus tachycardia [None]
  - Cognitive disorder [None]
  - Abdominal pain [None]
  - Chest pain [None]
  - Aphonia [None]
  - Heart rate increased [None]
  - Depression [None]
  - Oropharyngeal pain [None]
  - Dyspepsia [None]
  - Headache [None]
  - Weight decreased [None]
  - Chills [None]
  - Speech disorder [None]
  - Mood altered [None]
  - Nausea [None]
  - Vomiting [None]
  - Gait inability [None]
  - Coordination abnormal [None]
  - Confusional state [None]
  - Diarrhoea [None]
  - Insomnia [None]

NARRATIVE: CASE EVENT DATE: 20200206
